FAERS Safety Report 18537714 (Version 1)
Quarter: 2020Q4

REPORT INFORMATION
  Report Type: Spontaneous
  Country: US (occurrence: US)
  Receive Date: 20201124
  Receipt Date: 20201124
  Transmission Date: 20210114
  Serious: Yes (Hospitalization, Other)
  Sender: FDA-Public Use
  Company Number: US-CIPLA LTD.-2020US06867

PATIENT

DRUGS (8)
  1. OLANZAPINE. [Suspect]
     Active Substance: OLANZAPINE
     Indication: BIPOLAR I DISORDER
     Dosage: UNK (STARTED ON HD DAY 1 (TOTAL DAILY DOSE { 40MG)
     Route: 048
  2. LITHIUM. [Concomitant]
     Active Substance: LITHIUM
     Dosage: 1950 MG PER DAY
     Route: 048
  3. OLANZAPINE. [Suspect]
     Active Substance: OLANZAPINE
     Dosage: 25 MILLIGRAM, QD
     Route: 048
  4. LITHIUM. [Concomitant]
     Active Substance: LITHIUM
     Indication: BIPOLAR I DISORDER
     Dosage: 300 MILLIGRAM, BID
     Route: 048
  5. LITHIUM. [Concomitant]
     Active Substance: LITHIUM
     Indication: MANIA
     Dosage: 1500 MILLIGRAM, QD
     Route: 048
  6. LITHIUM. [Concomitant]
     Active Substance: LITHIUM
     Dosage: 1350 MG PER DAY ON DISCHARGE
     Route: 048
  7. LITHIUM. [Concomitant]
     Active Substance: LITHIUM
     Dosage: 1800 MG PER DAY ON HD 27
     Route: 048
  8. OLANZAPINE. [Suspect]
     Active Substance: OLANZAPINE
     Dosage: UNK, BID (ON HD9, TITRATED TO 10 MG IN THE MORNING 20 MG IN THE EVENING)
     Route: 048

REACTIONS (5)
  - Erythema [Unknown]
  - Pruritus [Unknown]
  - Oedema peripheral [Recovered/Resolved]
  - Weight increased [Recovering/Resolving]
  - Drug level decreased [Recovering/Resolving]
